FAERS Safety Report 10914819 (Version 1)
Quarter: 2015Q1

REPORT INFORMATION
  Report Type: Report from Study
  Country: US (occurrence: US)
  Receive Date: 20150313
  Receipt Date: 20150313
  Transmission Date: 20150721
  Serious: Yes (Other)
  Sender: FDA-Public Use
  Company Number: US-INTERMUNE, INC.-201503IM011213

PATIENT
  Age: 81 Year
  Sex: Female

DRUGS (6)
  1. ESTRACE [Concomitant]
     Active Substance: ESTRADIOL
  2. ALPRAZOLAM. [Concomitant]
     Active Substance: ALPRAZOLAM
  3. NEXIUM [Concomitant]
     Active Substance: ESOMEPRAZOLE MAGNESIUM
  4. ESBRIET [Suspect]
     Active Substance: PIRFENIDONE
     Indication: IDIOPATHIC PULMONARY FIBROSIS
     Route: 048
     Dates: start: 2006
  5. LIPITOR [Concomitant]
     Active Substance: ATORVASTATIN CALCIUM
  6. SYNTHROID [Concomitant]
     Active Substance: LEVOTHYROXINE SODIUM

REACTIONS (1)
  - Dermatitis allergic [Not Recovered/Not Resolved]
